FAERS Safety Report 8811163 (Version 3)
Quarter: 2013Q1

REPORT INFORMATION
  Report Type: Spontaneous
  Country: US (occurrence: US)
  Receive Date: 20120927
  Receipt Date: 20130107
  Transmission Date: 20140127
  Serious: Yes (Hospitalization, Disabling, Other)
  Sender: FDA-Public Use
  Company Number: US-009507513-1201USA02552

PATIENT
  Sex: 0

DRUGS (12)
  1. FOSAMAX [Suspect]
     Indication: OSTEOPOROSIS
     Dosage: 10 MG, UNKNOWN
     Route: 048
     Dates: start: 1997, end: 2000
  2. FOSAMAX [Suspect]
     Indication: OSTEOPENIA
     Dosage: 70 MG, QW
     Route: 048
     Dates: start: 2000, end: 200903
  3. CALCIUM (UNSPECIFIED) [Concomitant]
     Indication: OSTEOPOROSIS
     Dosage: 600 MG, BID,DAILY
     Dates: start: 2004
  4. VITAMIN D (UNSPECIFIED) [Concomitant]
     Indication: OSTEOPOROSIS
     Dosage: 400-1200 IU QD
     Dates: start: 2004
  5. CLIMARA [Concomitant]
     Indication: OSTEOPOROSIS
     Dosage: 0.05 MG, UNK
     Route: 062
     Dates: start: 1997
  6. ALLEGRA [Concomitant]
     Indication: RASH
     Dosage: 180 MG, QD
  7. ALLEGRA [Concomitant]
     Indication: PRURITUS
  8. PREDNISONE [Concomitant]
     Indication: RASH
     Dosage: 50 MG, QD FOR 10 DAYS
  9. EPIPEN [Concomitant]
     Indication: DYSPNOEA
  10. EPIPEN [Concomitant]
     Indication: RASH
  11. CHOLECALCIFEROL [Concomitant]
     Indication: OSTEOPOROSIS
     Dosage: 800 MG, UNK
  12. CALCIUM (UNSPECIFIED) (+) VITAMIN D (UNSPECIFIED) [Concomitant]
     Indication: OSTEOPOROSIS
     Dosage: 1200 MG, QD

REACTIONS (111)
  - Device failure [Not Recovered/Not Resolved]
  - Device failure [Not Recovered/Not Resolved]
  - Internal fixation of fracture [Not Recovered/Not Resolved]
  - Femur fracture [Not Recovered/Not Resolved]
  - Open reduction of fracture [Not Recovered/Not Resolved]
  - Fracture delayed union [Unknown]
  - Seroma [Unknown]
  - Low turnover osteopathy [Not Recovered/Not Resolved]
  - Cystopexy [Unknown]
  - Colon operation [Unknown]
  - Intervertebral disc degeneration [Unknown]
  - Cerebrovascular accident [Unknown]
  - Pulmonary embolism [Unknown]
  - Facet joint syndrome [Unknown]
  - Sacroiliitis [Unknown]
  - Appendicectomy [Unknown]
  - Procedural hypotension [Recovering/Resolving]
  - Anaemia [Unknown]
  - Intestinal resection [Unknown]
  - Incisional drainage [Unknown]
  - Fracture delayed union [Unknown]
  - Bone graft [Not Recovered/Not Resolved]
  - Renal failure [Unknown]
  - Bone graft [Unknown]
  - Femur fracture [Not Recovered/Not Resolved]
  - Back pain [Not Recovered/Not Resolved]
  - Back pain [Unknown]
  - Hypothyroidism [Unknown]
  - Hyperlipidaemia [Unknown]
  - Tooth disorder [Unknown]
  - Artificial crown procedure [Unknown]
  - Adverse event [Unknown]
  - Hypertension [Unknown]
  - Muscle relaxant therapy [Unknown]
  - Body height decreased [Unknown]
  - Rib hypoplasia [Unknown]
  - Lumbarisation [Unknown]
  - Mass [Unknown]
  - Intervertebral disc protrusion [Unknown]
  - Osteoma [Unknown]
  - Spinal osteoarthritis [Unknown]
  - Gait disturbance [Unknown]
  - Cardiac murmur [Unknown]
  - Fatigue [Unknown]
  - Blood glucose increased [Unknown]
  - Blood calcium increased [Unknown]
  - Urine calcium increased [Unknown]
  - Blood parathyroid hormone decreased [Unknown]
  - Osteoarthritis [Unknown]
  - Meniscus injury [Unknown]
  - Ligament rupture [Unknown]
  - Synovial cyst [Unknown]
  - Spinal compression fracture [Unknown]
  - Exostosis [Unknown]
  - Aortic calcification [Unknown]
  - Dyskinesia [Unknown]
  - Dry mouth [Unknown]
  - Nervousness [Unknown]
  - Feeling abnormal [Unknown]
  - Personality change [Unknown]
  - Overdose [Unknown]
  - Dyspnoea [Unknown]
  - Coronary artery disease [Unknown]
  - Mitral valve incompetence [Unknown]
  - Tricuspid valve incompetence [Unknown]
  - Pericardial effusion [Unknown]
  - Hypovolaemia [Unknown]
  - Left atrial dilatation [Unknown]
  - Aortic valve sclerosis [Unknown]
  - Cataract [Unknown]
  - Pulmonary hypertension [Unknown]
  - Kyphosis [Unknown]
  - Leukopenia [Unknown]
  - Sleep disorder [Unknown]
  - Haematoma [Unknown]
  - Anxiety [Unknown]
  - Stress [Unknown]
  - Decreased appetite [Unknown]
  - Urine leukocyte esterase [Unknown]
  - Hepatic steatosis [Unknown]
  - Thyroid disorder [Unknown]
  - Atelectasis [Unknown]
  - Pneumonia [Unknown]
  - Bronchitis [Unknown]
  - Weight decreased [Unknown]
  - Tachycardia [Unknown]
  - Pneumonia [Unknown]
  - Helicobacter infection [Unknown]
  - Depression [Unknown]
  - Hypotension [Unknown]
  - Bundle branch block right [Unknown]
  - Chest pain [Unknown]
  - Diastolic dysfunction [Unknown]
  - Palpitations [Unknown]
  - Dehydration [Unknown]
  - Bursitis [Not Recovered/Not Resolved]
  - Urinary tract infection [Unknown]
  - Tremor [Unknown]
  - Vision blurred [Unknown]
  - Dehydration [Unknown]
  - Aspiration joint [Unknown]
  - Spinal pain [Unknown]
  - Fibromyalgia [Unknown]
  - Asthenia [Unknown]
  - Dizziness [Unknown]
  - Nausea [Unknown]
  - Gastrooesophageal reflux disease [Unknown]
  - Oedema peripheral [Unknown]
  - Pain in extremity [Unknown]
  - Bone pain [Unknown]
  - Nausea [Unknown]
